FAERS Safety Report 6882580-X (Version None)
Quarter: 2010Q3

REPORT INFORMATION
  Report Type: 
  Country: None (occurrence: None)
  Receive Date: 20100729
  Receipt Date: 20100720
  Transmission Date: 20110219
  Serious: Yes (Other)
  Sender: FDA-Public Use
  Company Number: JP-ROCHE-591901

PATIENT
  Age: 4 Year
  Sex: Male
  Weight: 24.6 kg

DRUGS (46)
  1. TOCILIZUMAB [Suspect]
     Indication: JUVENILE ARTHRITIS
     Route: 041
     Dates: start: 20080612, end: 20080724
  2. TOCILIZUMAB [Suspect]
     Route: 041
     Dates: start: 20080807, end: 20081002
  3. TOCILIZUMAB [Suspect]
     Route: 041
     Dates: start: 20081021, end: 20081021
  4. TOCILIZUMAB [Suspect]
     Route: 041
     Dates: start: 20081106, end: 20081120
  5. TOCILIZUMAB [Suspect]
     Route: 041
     Dates: start: 20081204, end: 20081230
  6. TOCILIZUMAB [Suspect]
     Route: 041
     Dates: start: 20090114, end: 20090210
  7. TOCILIZUMAB [Suspect]
     Route: 041
     Dates: start: 20090226, end: 20090326
  8. TOCILIZUMAB [Suspect]
     Route: 041
     Dates: start: 20090409, end: 20090505
  9. TOCILIZUMAB [Suspect]
     Route: 041
     Dates: start: 20090604
  10. DECADRON [Concomitant]
     Route: 048
     Dates: end: 20080612
  11. DECADRON [Concomitant]
     Route: 048
     Dates: start: 20080613, end: 20080626
  12. DECADRON [Concomitant]
     Route: 048
     Dates: start: 20080627, end: 20080703
  13. DECADRON [Concomitant]
     Route: 048
     Dates: start: 20080704, end: 20080710
  14. DECADRON [Concomitant]
     Route: 048
     Dates: start: 20080711, end: 20080717
  15. DECADRON [Concomitant]
     Route: 048
     Dates: start: 20080718, end: 20080724
  16. DECADRON [Concomitant]
     Route: 048
     Dates: start: 20080725, end: 20080731
  17. DECADRON [Concomitant]
     Route: 048
     Dates: start: 20080801, end: 20080806
  18. DECADRON [Concomitant]
     Route: 048
     Dates: start: 20080807, end: 20080820
  19. DECADRON [Concomitant]
     Route: 048
     Dates: start: 20080821, end: 20080904
  20. DECADRON [Concomitant]
     Route: 048
     Dates: start: 20080905, end: 20080918
  21. DECADRON [Concomitant]
     Route: 048
     Dates: start: 20080919, end: 20080925
  22. DECADRON [Concomitant]
     Route: 048
     Dates: start: 20080926, end: 20081003
  23. DECADRON [Concomitant]
     Route: 048
     Dates: start: 20081004, end: 20081021
  24. DECADRON [Concomitant]
     Route: 048
     Dates: start: 20081022, end: 20081107
  25. DECADRON [Concomitant]
     Route: 048
     Dates: start: 20081108, end: 20081120
  26. DECADRON [Concomitant]
     Route: 048
     Dates: start: 20081121, end: 20081203
  27. DECADRON [Concomitant]
     Route: 048
     Dates: start: 20081204, end: 20081217
  28. DECADRON [Concomitant]
     Route: 048
     Dates: start: 20081218, end: 20081230
  29. DECADRON [Concomitant]
     Route: 048
     Dates: start: 20081231, end: 20090120
  30. IBRUPROFEN [Concomitant]
     Dosage: FORM: ORAL FORMULATION (NOS)
     Route: 048
     Dates: end: 20090311
  31. IBRUPROFEN [Concomitant]
     Route: 048
     Dates: start: 20090312, end: 20090504
  32. IBRUPROFEN [Concomitant]
     Route: 048
     Dates: start: 20090505, end: 20090603
  33. MARZULENE-S [Concomitant]
     Dosage: DOSEFORM: PERORAL AGENT
     Route: 048
  34. TAKEPRON [Concomitant]
     Dosage: FORM: PERORAL AGENT
     Route: 048
     Dates: end: 20090603
  35. COTRIM [Concomitant]
     Dosage: MONDAY AT MONDAY AND WEDNESDAY
     Route: 048
     Dates: end: 20080908
  36. FUNGIZONE [Concomitant]
     Route: 048
     Dates: end: 20080908
  37. BIOFERMIN [Concomitant]
     Route: 048
     Dates: end: 20090603
  38. BIOFERMIN [Concomitant]
     Route: 048
     Dates: start: 20090604
  39. ALFAROL [Concomitant]
     Route: 048
  40. NORVASC [Concomitant]
     Route: 048
     Dates: end: 20090311
  41. NORVASC [Concomitant]
     Route: 048
     Dates: start: 20090312, end: 20090325
  42. RENIVACE [Concomitant]
     Route: 048
     Dates: end: 20090120
  43. RENIVACE [Concomitant]
     Route: 048
     Dates: start: 20090121, end: 20090209
  44. BONALON [Concomitant]
     Route: 048
  45. FERROMIA [Concomitant]
     Dosage: FORM: PERORAL AGENT
     Route: 048
     Dates: end: 20080711
  46. NEORAL [Concomitant]
     Route: 048
     Dates: end: 20080908

REACTIONS (2)
  - NEPHROLITHIASIS [None]
  - WHITE BLOOD CELL COUNT DECREASED [None]
